FAERS Safety Report 14107469 (Version 1)
Quarter: 2017Q4

REPORT INFORMATION
  Report Type: Spontaneous
  Country: US (occurrence: None)
  Receive Date: 20171019
  Receipt Date: 20171019
  Transmission Date: 20180321
  Serious: Yes (Life-Threatening)
  Sender: FDA-Public Use
  Company Number: None

PATIENT
  Age: 41 Year
  Sex: Male
  Weight: 102.1 kg

DRUGS (1)
  1. PIPERACILLIN/TAZOBACTAM [Suspect]
     Active Substance: PIPERACILLIN SODIUM\TAZOBACTAM SODIUM
     Indication: DIVERTICULITIS
     Route: 042
     Dates: start: 20170629, end: 20170629

REACTIONS (4)
  - Angina pectoris [None]
  - Tachycardia [None]
  - Anxiety [None]
  - Anaphylactic reaction [None]

NARRATIVE: CASE EVENT DATE: 20170629
